FAERS Safety Report 12867165 (Version 2)
Quarter: 2018Q1

REPORT INFORMATION
  Report Type: Report from Study
  Country: AU (occurrence: AU)
  Receive Date: 20161020
  Receipt Date: 20180302
  Transmission Date: 20180508
  Serious: Yes (Hospitalization)
  Sender: FDA-Public Use
  Company Number: AU-TOLMAR, INC.-2015AU006690

PATIENT

DRUGS (2)
  1. ELIGARD [Suspect]
     Active Substance: LEUPROLIDE ACETATE
     Indication: PROSTATE CANCER
     Dosage: 7.5 MG, MONTHLY
     Route: 065
     Dates: start: 20150302
  2. ELIGARD [Suspect]
     Active Substance: LEUPROLIDE ACETATE
     Dosage: 7.5 MG, MONTHLY
     Route: 065
     Dates: start: 20150622

REACTIONS (5)
  - Lethargy [Unknown]
  - Weight increased [Unknown]
  - Cardiac pacemaker insertion [Unknown]
  - Gastric disorder [Unknown]
  - Dyspnoea exertional [Unknown]
